FAERS Safety Report 25064203 (Version 1)
Quarter: 2025Q1

REPORT INFORMATION
  Report Type: Spontaneous
  Country: US (occurrence: US)
  Receive Date: 20250311
  Receipt Date: 20250311
  Transmission Date: 20250409
  Serious: Yes (Death)
  Sender: GRIFOLS
  Company Number: US-IGSA-BIG0033413

PATIENT
  Sex: Female
  Weight: 104.31 kg

DRUGS (18)
  1. PROLASTIN-C LIQUID [Suspect]
     Active Substance: .ALPHA.1-PROTEINASE INHIBITOR HUMAN
     Indication: Alpha-1 antitrypsin deficiency
     Dosage: 9693 MILLIGRAM, Q.WK.
     Route: 042
  2. EPINEPHRINE [Concomitant]
     Active Substance: EPINEPHRINE
  3. HEPARIN [Concomitant]
     Active Substance: HEPARIN SODIUM
  4. LIDOCAINE [Concomitant]
     Active Substance: LIDOCAINE
  5. SODIUM CHLORIDE [Concomitant]
     Active Substance: SODIUM CHLORIDE
  6. IPRATROPIUM BROMIDE [Concomitant]
     Active Substance: IPRATROPIUM BROMIDE
  7. ALBUTEROL SULFATE [Concomitant]
     Active Substance: ALBUTEROL SULFATE
  8. ALBUTEROL SULFATE [Concomitant]
     Active Substance: ALBUTEROL SULFATE
  9. ALBUTEROL\IPRATROPIUM [Concomitant]
     Active Substance: ALBUTEROL\IPRATROPIUM
  10. PREDNISONE [Concomitant]
     Active Substance: PREDNISONE
  11. POTASSIUM CHLORIDE [Concomitant]
     Active Substance: POTASSIUM CHLORIDE
  12. MONTELUKAST SODIUM [Concomitant]
     Active Substance: MONTELUKAST SODIUM
  13. HYDROCHLOROTHIAZIDE [Concomitant]
     Active Substance: HYDROCHLOROTHIAZIDE
  14. ACYCLOVIR [Concomitant]
     Active Substance: ACYCLOVIR
  15. FUROSEMIDE [Concomitant]
     Active Substance: FUROSEMIDE
  16. FUROSEMIDE [Concomitant]
     Active Substance: FUROSEMIDE
  17. OXYGEN [Concomitant]
     Active Substance: OXYGEN
  18. ZITHROMAX [Concomitant]
     Active Substance: AZITHROMYCIN DIHYDRATE

REACTIONS (1)
  - Death [Fatal]
